FAERS Safety Report 9760755 (Version 1)
Quarter: 2013Q4

REPORT INFORMATION
  Report Type: Spontaneous
  Country: US (occurrence: US)
  Receive Date: 20131216
  Receipt Date: 20131216
  Transmission Date: 20140711
  Serious: No
  Sender: FDA-Public Use
  Company Number: US-BIOGENIDEC-2013BI102077

PATIENT
  Age: 60 Year
  Sex: Female

DRUGS (10)
  1. TECFIDERA [Suspect]
     Indication: MULTIPLE SCLEROSIS
     Route: 048
     Dates: start: 201304
  2. CLARITIN [Concomitant]
  3. VIVELLE-DOT [Concomitant]
  4. BONIVA [Concomitant]
  5. REQUIIP [Concomitant]
  6. WELLBUTRIN SR [Concomitant]
  7. EFFEXOR [Concomitant]
  8. SYNTHROID [Concomitant]
  9. ASPIRIN EC [Concomitant]
  10. TOPOMAX SPRINKLE [Concomitant]

REACTIONS (1)
  - Abdominal discomfort [Unknown]
